FAERS Safety Report 17057681 (Version 1)
Quarter: 2019Q4

REPORT INFORMATION
  Report Type: Spontaneous
  Country: US (occurrence: US)
  Receive Date: 20191121
  Receipt Date: 20191121
  Transmission Date: 20200122
  Serious: No
  Sender: FDA-Public Use
  Company Number: US-BAYER-2019-210342

PATIENT
  Sex: Female

DRUGS (3)
  1. SENNOSIDE A+B [Concomitant]
     Active Substance: SENNOSIDES A AND B
  2. MIRALAX [Suspect]
     Active Substance: POLYETHYLENE GLYCOL 3350
     Indication: CONSTIPATION
  3. MIRALAX [Suspect]
     Active Substance: POLYETHYLENE GLYCOL 3350
     Indication: GASTROINTESTINAL DISORDER
     Dosage: UNK, BID
     Route: 048
     Dates: start: 201910

REACTIONS (2)
  - Drug ineffective [Unknown]
  - Faeces hard [Unknown]

NARRATIVE: CASE EVENT DATE: 2019
